FAERS Safety Report 5873819-8 (Version None)
Quarter: 2008Q3

REPORT INFORMATION
  Report Type: 
  Country: None (occurrence: None)
  Receive Date: 20080903
  Receipt Date: 20080903
  Transmission Date: 20090109
  Serious: Yes (Other)
  Sender: FDA-Public Use
  Company Number: None

PATIENT
  Age: 15 Year
  Sex: Male
  Weight: 83.9154 kg

DRUGS (2)
  1. RISPERIDONE [Suspect]
     Indication: TOURETTE'S DISORDER
     Dosage: .5 MG 2 IN 1 AM, 1 IN PM PO
     Route: 048
     Dates: start: 20080815, end: 20080821
  2. RISPERDAL [Suspect]

REACTIONS (7)
  - ANXIETY [None]
  - CONDITION AGGRAVATED [None]
  - DEPRESSION [None]
  - ECONOMIC PROBLEM [None]
  - EMOTIONAL DISTRESS [None]
  - THERAPEUTIC RESPONSE UNEXPECTED WITH DRUG SUBSTITUTION [None]
  - TOURETTE'S DISORDER [None]
